FAERS Safety Report 10069360 (Version 1)
Quarter: 2014Q2

REPORT INFORMATION
  Report Type: Spontaneous
  Country: CA (occurrence: CA)
  Receive Date: 20140410
  Receipt Date: 20140410
  Transmission Date: 20141212
  Serious: Yes (Other)
  Sender: FDA-Public Use
  Company Number: CA-ROCHE-1378572

PATIENT
  Sex: Female

DRUGS (11)
  1. HERCEPTIN [Suspect]
     Indication: BREAST CANCER
     Route: 042
     Dates: start: 2008, end: 2011
  2. XELODA [Concomitant]
     Indication: BREAST CANCER
     Route: 048
     Dates: start: 2013
  3. COUMADIN [Concomitant]
     Route: 065
     Dates: start: 2009
  4. SYNTHROID [Concomitant]
  5. HYDROMORPHONE [Concomitant]
     Route: 065
     Dates: start: 201311
  6. LYRICA [Concomitant]
     Route: 065
     Dates: start: 201311
  7. ADALATE [Concomitant]
     Route: 065
     Dates: start: 2007
  8. ATACAND [Concomitant]
     Route: 065
     Dates: start: 2007
  9. TEMAZEPAM [Concomitant]
     Route: 065
     Dates: start: 2008
  10. NAVELBINE [Concomitant]
     Route: 065
     Dates: start: 2010, end: 2011
  11. TYKERB [Concomitant]
     Route: 065
     Dates: start: 2013

REACTIONS (3)
  - Thrombosis [Unknown]
  - Metastases to lung [Unknown]
  - Metastases to spine [Unknown]
